FAERS Safety Report 5806523-2 (Version None)
Quarter: 2008Q3

REPORT INFORMATION
  Report Type: 
  Country: None (occurrence: None)
  Receive Date: 20080710
  Receipt Date: 20080703
  Transmission Date: 20090109
  Serious: Yes (Hospitalization)
  Sender: FDA-Public Use
  Company Number: US-BOEHRINGER INGELHEIM GMBH, GERMANY-2008-BP-10301RO

PATIENT
  Age: 63 Year
  Sex: Male

DRUGS (6)
  1. MEFLOQUINE [Suspect]
     Indication: MALARIA PROPHYLAXIS
  2. ESKALITH CR [Suspect]
     Indication: BIPOLAR I DISORDER
  3. ESKALITH CR [Suspect]
  4. LUNESTA [Suspect]
  5. QUETIAPINE FUMARATE [Concomitant]
     Indication: BIPOLAR I DISORDER
  6. QUETIAPINE FUMARATE [Concomitant]
     Indication: MANIA

REACTIONS (3)
  - ANTIPSYCHOTIC DRUG LEVEL INCREASED [None]
  - MANIA [None]
  - WHITE BLOOD CELL COUNT INCREASED [None]
